FAERS Safety Report 25895110 (Version 1)
Quarter: 2025Q4

REPORT INFORMATION
  Report Type: Spontaneous
  Country: CA (occurrence: CA)
  Receive Date: 20251008
  Receipt Date: 20251008
  Transmission Date: 20260117
  Serious: Yes (Hospitalization)
  Sender: MACLEODS
  Company Number: CA-MLMSERVICE-20170706-0795669-1

PATIENT

DRUGS (1)
  1. DOXYCYCLINE [Suspect]
     Active Substance: DOXYCYCLINE
     Indication: Acne conglobata
     Route: 048

REACTIONS (2)
  - Neutrophilic dermatosis [Recovering/Resolving]
  - Condition aggravated [Recovering/Resolving]
